FAERS Safety Report 5782932-5 (Version None)
Quarter: 2008Q2

REPORT INFORMATION
  Report Type: 
  Country: None (occurrence: None)
  Receive Date: 20080619
  Receipt Date: 20080611
  Transmission Date: 20081010
  Serious: Yes (Life-Threatening)
  Sender: FDA-Public Use
  Company Number: 001340

PATIENT
  Age: 17 Year
  Sex: Male

DRUGS (6)
  1. BUSULFEX [Suspect]
     Indication: STEM CELL TRANSPLANT
     Dosage: 40 ML, INTRAVENOUS
     Route: 042
     Dates: start: 20080419, end: 20080420
  2. FLUDARABINE PHOSPHATE [Concomitant]
  3. VALPROATE SODIUM [Concomitant]
  4. LENOGRASTIM (LENOGRASTIM) [Concomitant]
  5. METHOTREXATE [Concomitant]
  6. TACROLIMUS [Concomitant]

REACTIONS (8)
  - ANOREXIA [None]
  - BONE MARROW TRANSPLANT [None]
  - DIARRHOEA [None]
  - MALAISE [None]
  - NAUSEA [None]
  - SEPSIS [None]
  - STOMATITIS [None]
  - VOMITING [None]
